FAERS Safety Report 10128547 (Version 1)
Quarter: 2014Q2

REPORT INFORMATION
  Report Type: Spontaneous
  Country: GB (occurrence: GB)
  Receive Date: 20140428
  Receipt Date: 20140428
  Transmission Date: 20141212
  Serious: Yes (Hospitalization)
  Sender: FDA-Public Use
  Company Number: GB-ACCORD-023292

PATIENT
  Age: 65 Year
  Sex: Female

DRUGS (3)
  1. FOLIC ACID [Concomitant]
  2. METHOTREXATE [Suspect]
     Indication: PSORIATIC ARTHROPATHY
     Route: 048
     Dates: start: 20081111, end: 20140205
  3. HUMIRA [Suspect]
     Indication: PSORIATIC ARTHROPATHY
     Dosage: ALTERNATE WEEKS.
     Route: 058
     Dates: start: 2009, end: 20140202

REACTIONS (3)
  - Abdominal pain [Unknown]
  - Secretion discharge [Unknown]
  - Peritonitis [Recovered/Resolved]
